FAERS Safety Report 8860195 (Version 5)
Quarter: 2013Q3

REPORT INFORMATION
  Report Type: Report from Study
  Country: JP (occurrence: JP)
  Receive Date: 20121025
  Receipt Date: 20130923
  Transmission Date: 20140515
  Serious: Yes (Hospitalization)
  Sender: FDA-Public Use
  Company Number: JP-JNJFOC-20121011706

PATIENT
  Age: 60 Year
  Sex: Male
  Weight: 66 kg

DRUGS (13)
  1. SIMPONI [Suspect]
     Indication: RHEUMATOID ARTHRITIS
     Route: 058
     Dates: start: 20120428, end: 20120428
  2. SIMPONI [Suspect]
     Indication: RHEUMATOID ARTHRITIS
     Route: 058
     Dates: start: 20121115
  3. SIMPONI [Suspect]
     Indication: RHEUMATOID ARTHRITIS
     Route: 058
     Dates: start: 20111110, end: 20111110
  4. METHOTREXATE [Concomitant]
     Indication: RHEUMATOID ARTHRITIS
     Route: 065
     Dates: end: 20120301
  5. METHOTREXATE [Concomitant]
     Indication: RHEUMATOID ARTHRITIS
     Route: 065
     Dates: start: 20120724
  6. METHOTREXATE [Concomitant]
     Indication: RHEUMATOID ARTHRITIS
     Route: 065
     Dates: start: 20120302, end: 20120723
  7. FOLIAMIN [Concomitant]
     Indication: PROPHYLAXIS
     Route: 048
  8. MEVALOTIN [Concomitant]
     Indication: HYPERCHOLESTEROLAEMIA
     Route: 048
     Dates: start: 20120204
  9. PARIET [Concomitant]
     Indication: GASTRITIS
     Route: 048
     Dates: start: 20120329, end: 20121015
  10. TAKEPRON [Concomitant]
     Indication: GASTRITIS
     Route: 048
     Dates: end: 20120329
  11. LIPITOR [Concomitant]
     Indication: HYPERCHOLESTEROLAEMIA
     Route: 048
  12. GASLON N [Concomitant]
     Indication: GASTRITIS
     Route: 048
     Dates: end: 20111208
  13. NEXIUM [Concomitant]
     Indication: GASTRITIS
     Route: 048
     Dates: start: 20121016

REACTIONS (1)
  - Lumbar spinal stenosis [Recovered/Resolved]
